FAERS Safety Report 20069458 (Version 1)
Quarter: 2021Q4

REPORT INFORMATION
  Report Type: Spontaneous
  Country: US (occurrence: None)
  Receive Date: 20211112
  Receipt Date: 20211112
  Transmission Date: 20220303
  Serious: Yes (Life-Threatening)
  Sender: FDA-Public Use
  Company Number: None

PATIENT
  Age: 67 Year
  Sex: Female
  Weight: 63 kg

DRUGS (1)
  1. PANTOPRAZOLE [Suspect]
     Active Substance: PANTOPRAZOLE
     Indication: Gastrointestinal disorder prophylaxis
     Dosage: FREQUENCY : DAILY;?
     Route: 042
     Dates: start: 20210528, end: 20210531

REACTIONS (2)
  - Pancytopenia [None]
  - Neutropenic sepsis [None]

NARRATIVE: CASE EVENT DATE: 20210529
